FAERS Safety Report 4896960-5 (Version None)
Quarter: 2006Q1

REPORT INFORMATION
  Report Type: 
  Country: None (occurrence: None)
  Receive Date: 20060127
  Receipt Date: 20060110
  Transmission Date: 20060701
  Serious: Yes (Hospitalization, Other)
  Sender: FDA-Public Use
  Company Number: FR200601001433

PATIENT
  Age: 91 Year
  Sex: Female
  Weight: 37 kg

DRUGS (10)
  1. PROZAC [Suspect]
     Dosage: 10 MEQ, DAILY (1/D), ORAL
     Route: 048
     Dates: start: 20050908
  2. PREVISCAN (FLUINDIONE) [Concomitant]
  3. TENORMIN [Concomitant]
  4. XATRAL /FRA/ (ALFUZOSIN) [Concomitant]
  5. AMLODIPINE BESYLATE [Concomitant]
  6. OMEPRAZOLE [Concomitant]
  7. FORLAX (MACROGOL) [Concomitant]
  8. TARDYFERON /GFR/ (FERROUS SULFATE) [Concomitant]
  9. OROCAL VITAMIN D (CALCIUM CARBONATE, COLECALCIFEROL) [Concomitant]
  10. ACTONEL /USA/ (RISEDRONATE SODIUM) [Concomitant]

REACTIONS (7)
  - ATRIAL FIBRILLATION [None]
  - FALL [None]
  - HYPOTENSION [None]
  - INTERNATIONAL NORMALISED RATIO INCREASED [None]
  - LABELLED DRUG-DRUG INTERACTION MEDICATION ERROR [None]
  - PELVIC FRACTURE [None]
  - RENAL FAILURE [None]
